FAERS Safety Report 5144310-1 (Version None)
Quarter: 2006Q4

REPORT INFORMATION
  Report Type: 
  Country: None (occurrence: None)
  Receive Date: 20061030
  Receipt Date: 20060920
  Transmission Date: 20070319
  Serious: Yes (Other)
  Sender: FDA-Public Use
  Company Number: 2006SP002476

PATIENT
  Sex: Male

DRUGS (1)
  1. INTRON A [Suspect]
     Indication: HEPATITIS C
     Dates: end: 20000901

REACTIONS (3)
  - DEPRESSION [None]
  - DRUG ABUSER [None]
  - WEIGHT DECREASED [None]
